FAERS Safety Report 8302147-6 (Version None)
Quarter: 2012Q2

REPORT INFORMATION
  Report Type: 
  Country: None (occurrence: None)
  Receive Date: 20120420
  Receipt Date: 20120411
  Transmission Date: 20120825
  Serious: Yes (Hospitalization)
  Sender: FDA-Public Use
  Company Number: FR-BRISTOL-MYERS SQUIBB COMPANY-16517096

PATIENT
  Age: 58 Year
  Sex: Male

DRUGS (1)
  1. HYDREA [Suspect]
     Route: 048
     Dates: start: 20110818, end: 20110919

REACTIONS (1)
  - PANCREATITIS [None]
